FAERS Safety Report 7578284-0 (Version None)
Quarter: 2011Q2

REPORT INFORMATION
  Report Type: 
  Country: None (occurrence: None)
  Receive Date: 20110628
  Receipt Date: 20110620
  Transmission Date: 20111010
  Serious: Yes (Death, Hospitalization, Other)
  Sender: FDA-Public Use
  Company Number: US-ELI_LILLY_AND_COMPANY-US201010003747

PATIENT
  Sex: Female
  Weight: 67.12 kg

DRUGS (6)
  1. CORTICOSTEROIDS [Concomitant]
     Dosage: 8 MG, BID
     Route: 048
     Dates: start: 20101029
  2. FOLIC ACID [Concomitant]
     Dosage: 100 UNK, UNKNOWN
     Route: 048
     Dates: start: 20101006
  3. VITAMIN B-12 [Concomitant]
     Dosage: 1000 MG, UNKNOWN
     Route: 030
     Dates: start: 20101006
  4. ALIMTA [Suspect]
     Indication: LUNG NEOPLASM MALIGNANT
     Dosage: 890 MG, OTHER (EVERY 3 WEEKS)
     Route: 042
     Dates: start: 20101007
  5. ALIMTA [Suspect]
     Dosage: 890 MG, EVERY 3 WEEKS
     Route: 042
     Dates: start: 20101027
  6. DECADRON [Concomitant]
     Dosage: 8 MG, BID
     Route: 048

REACTIONS (5)
  - NEOPLASM MALIGNANT [None]
  - DYSPHAGIA [None]
  - RASH [None]
  - PHARYNGITIS [None]
  - OROPHARYNGEAL PAIN [None]
